FAERS Safety Report 7227297-7 (Version None)
Quarter: 2011Q1

REPORT INFORMATION
  Report Type: 
  Country: None (occurrence: None)
  Receive Date: 20110114
  Receipt Date: 20110107
  Transmission Date: 20110831
  Serious: Yes (Hospitalization)
  Sender: FDA-Public Use
  Company Number: B0575778A

PATIENT
  Sex: Female
  Weight: 52 kg

DRUGS (5)
  1. CODEINE [Concomitant]
     Indication: COUGH
     Route: 048
     Dates: start: 20090521
  2. MACPERAN [Concomitant]
     Indication: NAUSEA
     Dosage: 15MG THREE TIMES PER DAY
     Route: 048
     Dates: start: 20090518, end: 20090524
  3. VOGLIBOSE [Concomitant]
     Indication: DIABETES MELLITUS
     Dosage: .2MG THREE TIMES PER DAY
     Route: 048
     Dates: start: 20090403
  4. PAZOPANIB [Suspect]
     Indication: SARCOMA
     Dosage: 800MG PER DAY
     Route: 048
     Dates: start: 20090514
  5. MEGACE [Concomitant]
     Indication: DECREASED APPETITE
     Dosage: 10ML TWICE PER DAY
     Route: 048
     Dates: start: 20090521, end: 20090524

REACTIONS (4)
  - COUGH [None]
  - PYREXIA [None]
  - CHILLS [None]
  - RESPIRATORY TRACT INFECTION [None]
